FAERS Safety Report 6126469-2 (Version None)
Quarter: 2009Q1

REPORT INFORMATION
  Report Type: 
  Country: None (occurrence: None)
  Receive Date: 20090320
  Receipt Date: 20090310
  Transmission Date: 20090719
  Serious: Yes (Hospitalization)
  Sender: FDA-Public Use
  Company Number: FR-JNJFOC-20090303068

PATIENT
  Age: 81 Year
  Sex: Male

DRUGS (16)
  1. REMICADE [Suspect]
     Indication: ANKYLOSING SPONDYLITIS
     Route: 042
  2. PRAXILENE [Concomitant]
  3. ZOLTUM [Concomitant]
  4. ATACAND [Concomitant]
  5. EURELIX [Concomitant]
  6. HYPERIUM [Concomitant]
  7. TRANXENE [Concomitant]
  8. SPECIAFOLDINE [Concomitant]
  9. VITAMIN B1 TAB [Concomitant]
  10. VITAMIN B6 [Concomitant]
  11. SERETIDE [Concomitant]
  12. VENTOLIN [Concomitant]
  13. PROFENID [Concomitant]
  14. DOLIPRANE [Concomitant]
  15. CLARADOL [Concomitant]
  16. LAMALINE [Concomitant]

REACTIONS (3)
  - HIP SURGERY [None]
  - NEOPLASM PROSTATE [None]
  - NON-HODGKIN'S LYMPHOMA [None]
